FAERS Safety Report 5910278-0 (Version None)
Quarter: 2008Q4

REPORT INFORMATION
  Report Type: 
  Country: None (occurrence: None)
  Receive Date: 20081007
  Receipt Date: 20080725
  Transmission Date: 20090506
  Serious: No
  Sender: FDA-Public Use
  Company Number: A0739592A

PATIENT
  Age: 36 Year
  Sex: Female

DRUGS (2)
  1. ADVAIR DISKUS 100/50 [Suspect]
     Indication: ASTHMA
     Dosage: 2PUFF TWICE PER DAY
     Route: 055
     Dates: start: 20070501, end: 20080601
  2. RELPAX [Concomitant]

REACTIONS (3)
  - ALOPECIA [None]
  - PAIN IN EXTREMITY [None]
  - VISION BLURRED [None]
